FAERS Safety Report 10024647 (Version 1)
Quarter: 2014Q1

REPORT INFORMATION
  Report Type: Spontaneous
  Country: US (occurrence: None)
  Receive Date: 20140318
  Receipt Date: 20140318
  Transmission Date: 20141002
  Serious: Yes (Other)
  Sender: FDA-Public Use
  Company Number: 152820

PATIENT
  Age: 48 Year
  Sex: Female

DRUGS (1)
  1. BUPRENORPHINE HCL [Suspect]
     Indication: DRUG WITHDRAWAL SYNDROME
     Route: 030

REACTIONS (2)
  - Hepatitis acute [None]
  - Tremor [None]
